FAERS Safety Report 17841334 (Version 1)
Quarter: 2020Q2

REPORT INFORMATION
  Report Type: Spontaneous
  Country: FR (occurrence: FR)
  Receive Date: 20200529
  Receipt Date: 20200529
  Transmission Date: 20200714
  Serious: Yes (Other)
  Sender: FDA-Public Use
  Company Number: FR-JNJFOC-20200523623

PATIENT
  Age: 30 Year
  Sex: Female

DRUGS (1)
  1. EPITOMAX [Suspect]
     Active Substance: TOPIRAMATE
     Indication: MIGRAINE
     Route: 048
     Dates: start: 201909, end: 202004

REACTIONS (1)
  - Hallucination, auditory [Recovered/Resolved]

NARRATIVE: CASE EVENT DATE: 202004
